FAERS Safety Report 5171119-5 (Version None)
Quarter: 2006Q4

REPORT INFORMATION
  Report Type: 
  Country: None (occurrence: None)
  Receive Date: 20061213
  Receipt Date: 20061208
  Transmission Date: 20070319
  Serious: Yes (Disabling)
  Sender: FDA-Public Use
  Company Number: 2006AC02299

PATIENT
  Age: 819 Month
  Sex: Male
  Weight: 79 kg

DRUGS (5)
  1. CRESTOR [Suspect]
     Indication: DIABETES MELLITUS NON-INSULIN-DEPENDENT
     Route: 048
     Dates: end: 20060426
  2. METFORMIN HCL [Concomitant]
     Indication: DIABETES MELLITUS NON-INSULIN-DEPENDENT
  3. GLICLAZIDE [Concomitant]
     Indication: DIABETES MELLITUS
     Dates: end: 20060929
  4. ASCAL [Concomitant]
  5. TELFAST [Concomitant]

REACTIONS (4)
  - BLOOD CHOLESTEROL DECREASED [None]
  - BLOOD TRIGLYCERIDES DECREASED [None]
  - LOW DENSITY LIPOPROTEIN DECREASED [None]
  - POLYNEUROPATHY [None]
